FAERS Safety Report 4524973-1 (Version None)
Quarter: 2004Q4

REPORT INFORMATION
  Report Type: 
  Country: None (occurrence: None)
  Receive Date: 20041117
  Receipt Date: 20030620
  Transmission Date: 20050328
  Serious: Yes (Other)
  Sender: FDA-Public Use
  Company Number: C2003-1532.01

PATIENT
  Age: 25 Year
  Sex: Female

DRUGS (5)
  1. CLOZAPINE [Suspect]
     Indication: SCHIZOAFFECTIVE DISORDER
     Dosage: 100MG Q HS, THE 200MG Q HS, THEN 300MG Q HS, ORAL
     Route: 048
     Dates: start: 20021201
  2. CLOZAPINE [Suspect]
     Indication: SCHIZOAFFECTIVE DISORDER
     Dosage: 100MG Q HS, THE 200MG Q HS, THEN 300MG Q HS, ORAL
     Route: 048
     Dates: start: 20030527
  3. DIVALPROEX SODIUM [Concomitant]
  4. DOCUSATE CALCIUM [Concomitant]
  5. SULFAMETHOXAZOLE + TRIMETHOPRIM [Concomitant]

REACTIONS (3)
  - NEUTROPENIA [None]
  - VAGINAL INFECTION [None]
  - WHITE BLOOD CELL COUNT DECREASED [None]
